FAERS Safety Report 7986036-2 (Version None)
Quarter: 2011Q4

REPORT INFORMATION
  Report Type: 
  Country: None (occurrence: None)
  Receive Date: 20111216
  Receipt Date: 20110105
  Transmission Date: 20120403
  Serious: No
  Sender: FDA-Public Use
  Company Number: US-BRISTOL-MYERS SQUIBB COMPANY-15473374

PATIENT
  Age: 66 Year
  Sex: Female

DRUGS (3)
  1. ABILIFY [Suspect]
     Dosage: INITIALLY 10MG DOSE IN AUGUST LATER REDUCED TO 5MG
     Dates: end: 20100901
  2. LEXAPRO [Concomitant]
  3. NEURONTIN [Concomitant]

REACTIONS (2)
  - RESTLESSNESS [None]
  - TARDIVE DYSKINESIA [None]
